FAERS Safety Report 15258800 (Version 1)
Quarter: 2018Q3

REPORT INFORMATION
  Report Type: Report from Study
  Country: US (occurrence: US)
  Receive Date: 20180809
  Receipt Date: 20180809
  Transmission Date: 20181010
  Serious: Yes (Hospitalization, Other)
  Sender: FDA-Public Use
  Company Number: US-ACADIA PHARMACEUTICALS INC.-ACA-2018-009772

PATIENT
  Age: 77 Year
  Sex: Female

DRUGS (3)
  1. NUPLAZID [Suspect]
     Active Substance: PIMAVANSERIN TARTRATE
     Indication: DELUSION
  2. NUPLAZID [Suspect]
     Active Substance: PIMAVANSERIN TARTRATE
     Indication: HALLUCINATION
     Dosage: 17 MG, QD
     Route: 065
     Dates: start: 20180727, end: 20180730
  3. NUPLAZID [Suspect]
     Active Substance: PIMAVANSERIN TARTRATE
     Indication: PARKINSON^S DISEASE PSYCHOSIS

REACTIONS (14)
  - Decreased appetite [Unknown]
  - Soliloquy [Unknown]
  - Underdose [Unknown]
  - Gait inability [Unknown]
  - Hypertension [Unknown]
  - Diabetes mellitus [Unknown]
  - Psychotic disorder [Unknown]
  - Sluggishness [Unknown]
  - Feeling abnormal [Unknown]
  - Urinary tract infection [Unknown]
  - Seizure [Unknown]
  - Asthenia [Unknown]
  - Dysphagia [Unknown]
  - Loss of personal independence in daily activities [Unknown]

NARRATIVE: CASE EVENT DATE: 201807
